FAERS Safety Report 6785538-4 (Version None)
Quarter: 2010Q2

REPORT INFORMATION
  Report Type: 
  Country: None (occurrence: None)
  Receive Date: 20100623
  Receipt Date: 20100611
  Transmission Date: 20101027
  Serious: Yes (Hospitalization)
  Sender: FDA-Public Use
  Company Number: US-JNJFOC-20100505284

PATIENT

DRUGS (2)
  1. CHILDREN'S MOTRIN [Suspect]
     Indication: EAR INFECTION
     Dosage: ^ALTERNATING BETWEEN MOTRIN^
     Route: 048
  2. CHILDREN'S MOTRIN [Suspect]
     Indication: PYREXIA
     Dosage: ^ALTERNATING BETWEEN MOTRIN^
     Route: 048

REACTIONS (2)
  - CONVULSION [None]
  - PRODUCT QUALITY ISSUE [None]
